FAERS Safety Report 4425835-0 (Version None)
Quarter: 2004Q3

REPORT INFORMATION
  Report Type: 
  Country: None (occurrence: None)
  Receive Date: 20040810
  Receipt Date: 20040728
  Transmission Date: 20050211
  Serious: Yes (Hospitalization)
  Sender: FDA-Public Use
  Company Number: 2004051823

PATIENT
  Age: 76 Year
  Sex: Male

DRUGS (7)
  1. NORVASC [Suspect]
     Indication: ILL-DEFINED DISORDER
     Dosage: 5 MG (UNKNOWN), ORAL
     Route: 048
     Dates: end: 20040721
  2. FAMOTIDINE [Suspect]
     Indication: ILL-DEFINED DISORDER
     Dosage: 20 MG
  3. PRANLUKAST (PRANLUKAST) [Suspect]
     Indication: ILL-DEFINED DISORDER
  4. CEFEPIME HYDROCHLORIDE (CEFEPIME HYDROCHLORIDE) [Suspect]
     Indication: ILL-DEFINED DISORDER
     Dates: start: 20040625, end: 20040702
  5. CLINDAMYCIN HCL [Suspect]
     Indication: ILL-DEFINED DISORDER
     Dates: start: 20040703, end: 20040707
  6. TULOBUTEROL HYDROCHLORIDE (TULOBUTEROL HYDROCHLORIDE) [Concomitant]
  7. THEOPHYLLINE [Concomitant]

REACTIONS (3)
  - PLATELET COUNT DECREASED [None]
  - PNEUMONIA [None]
  - WHITE BLOOD CELL COUNT DECREASED [None]
